FAERS Safety Report 8974646 (Version 1)
Quarter: 2012Q4

REPORT INFORMATION
  Report Type: 
  Country: US (occurrence: US)
  Receive Date: 20121220
  Receipt Date: 20121220
  Transmission Date: 20130627
  Serious: No
  Sender: FDA-Public Use
  Company Number: US-BAYER-2012-132150

PATIENT
  Age: 23 Month
  Sex: Female
  Weight: 12 kg

DRUGS (2)
  1. ALEVE LIQUID GELS [Suspect]
     Dosage: 1 DF, ONCE
     Route: 048
     Dates: start: 20121210, end: 20121210
  2. NEBULIZER AS NEEDED [Concomitant]

REACTIONS (1)
  - Productive cough [None]
